FAERS Safety Report 4828600-5 (Version None)
Quarter: 2005Q4

REPORT INFORMATION
  Report Type: 
  Country: None (occurrence: None)
  Receive Date: 20051115
  Receipt Date: 20051104
  Transmission Date: 20060501
  Serious: Yes (Other)
  Sender: FDA-Public Use
  Company Number: PHNU2005DE03643

PATIENT

DRUGS (2)
  1. PROVASIN TAB [Suspect]
     Route: 048
  2. ACE-HEMMER [Concomitant]

REACTIONS (1)
  - TACHYCARDIA [None]
